FAERS Safety Report 4514241-6 (Version None)
Quarter: 2004Q4

REPORT INFORMATION
  Report Type: 
  Country: None (occurrence: None)
  Receive Date: 20040928
  Receipt Date: 20040624
  Transmission Date: 20050328
  Serious: No
  Sender: FDA-Public Use
  Company Number: 04P-163-0264750-00

PATIENT
  Age: 52 Year
  Sex: Female

DRUGS (4)
  1. HUMIRA [Suspect]
     Indication: RHEUMATOID ARTHRITIS
     Dosage: 40 MG, 1 IN 2 WK, SUBCUTANEOUS
     Route: 058
     Dates: start: 20030601
  2. METHOTREXATE [Suspect]
     Indication: RHEUMATOID ARTHRITIS
     Dosage: 1, 1 IN 1 WK, SUBCUTANEOUS
     Route: 058
     Dates: end: 20040606
  3. FOLIC ACID [Concomitant]
  4. PROPACET 100 [Concomitant]

REACTIONS (2)
  - HEPATIC ENZYME INCREASED [None]
  - INJECTION SITE BURNING [None]
